FAERS Safety Report 5749723-2 (Version None)
Quarter: 2008Q2

REPORT INFORMATION
  Report Type: 
  Country: None (occurrence: None)
  Receive Date: 20080521
  Receipt Date: 20080521
  Transmission Date: 20081010
  Serious: Yes (Disabling)
  Sender: FDA-Public Use
  Company Number: None

PATIENT
  Age: 36 Year
  Sex: Female
  Weight: 58 kg

DRUGS (2)
  1. TRASTUZUMAB [Suspect]
     Indication: CARDIAC FAILURE
     Dosage: 6 MG/KG (342 MG) Q 3W PR
     Dates: start: 20070811
  2. TRASTUZUMAB [Suspect]
     Indication: CARDIOTOXICITY
     Dosage: 6 MG/KG (342 MG) Q 3W PR
     Dates: start: 20070811

REACTIONS (2)
  - CARDIOMYOPATHY [None]
  - DYSPNOEA [None]
